FAERS Safety Report 7763161-2 (Version None)
Quarter: 2011Q3

REPORT INFORMATION
  Report Type: 
  Country: None (occurrence: None)
  Receive Date: 20110920
  Receipt Date: 20110912
  Transmission Date: 20111222
  Serious: Yes (Hospitalization)
  Sender: FDA-Public Use
  Company Number: PHHY2011CA29547

PATIENT
  Sex: Female

DRUGS (1)
  1. SANDOSTATIN LAR [Suspect]
     Indication: ANGIODYSPLASIA
     Dosage: 20 MG, QMO
     Route: 030
     Dates: start: 20090505

REACTIONS (7)
  - ASTHENIA [None]
  - CHOLANGITIS [None]
  - NEPHROLITHIASIS [None]
  - BLOOD POTASSIUM DECREASED [None]
  - CHOLANGITIS ACUTE [None]
  - FATIGUE [None]
  - PAIN IN EXTREMITY [None]
